FAERS Safety Report 25786889 (Version 1)
Quarter: 2025Q3

REPORT INFORMATION
  Report Type: Spontaneous
  Country: US (occurrence: None)
  Receive Date: 20250909
  Receipt Date: 20250909
  Transmission Date: 20251021
  Serious: Yes (Other)
  Sender: FDA-CTU
  Company Number: None

PATIENT
  Age: 20 Year
  Sex: Female
  Weight: 90.72 kg

DRUGS (5)
  1. CORTICOTROPIN [Suspect]
     Active Substance: CORTICOTROPIN
     Indication: Multiple sclerosis
     Route: 058
     Dates: start: 20250902
  2. BRIUMVI [Concomitant]
     Active Substance: UBLITUXIMAB-XIIY
  3. VITAMIN D3 [Concomitant]
     Active Substance: CHOLECALCIFEROL
  4. TRAMADOL HCL [Concomitant]
     Active Substance: TRAMADOL HYDROCHLORIDE
  5. BACLOFEN [Suspect]
     Active Substance: BACLOFEN

REACTIONS (5)
  - Temperature intolerance [None]
  - Hypoaesthesia [None]
  - Muscle spasms [None]
  - Muscle spasms [None]
  - Multiple sclerosis relapse [None]

NARRATIVE: CASE EVENT DATE: 20250909
